FAERS Safety Report 15729682 (Version 1)
Quarter: 2018Q4

REPORT INFORMATION
  Report Type: Spontaneous
  Country: US (occurrence: US)
  Receive Date: 20181216
  Receipt Date: 20181216
  Transmission Date: 20190205
  Serious: Yes (Disabling)
  Sender: FDA-Public Use
  Company Number: None

PATIENT
  Age: 45 Year
  Sex: Female
  Weight: 74.25 kg

DRUGS (2)
  1. DULOXETINE DR 30 MG + CAPSULES [Suspect]
     Active Substance: DULOXETINE
     Indication: ANXIETY
     Dosage: ?          QUANTITY:90 CAPSULE(S);?
     Route: 048
     Dates: start: 20181120, end: 20181216
  2. VITAMIN D3 [Concomitant]
     Active Substance: CHOLECALCIFEROL

REACTIONS (7)
  - Pain [None]
  - Mood swings [None]
  - Paraesthesia [None]
  - Abnormal dreams [None]
  - Anxiety [None]
  - Affect lability [None]
  - Drug ineffective [None]

NARRATIVE: CASE EVENT DATE: 20181120
